FAERS Safety Report 13897770 (Version 1)
Quarter: 2017Q3

REPORT INFORMATION
  Report Type: Report from Study
  Country: US (occurrence: US)
  Receive Date: 20170823
  Receipt Date: 20170823
  Transmission Date: 20171127
  Serious: Yes (Other)
  Sender: FDA-Public Use
  Company Number: US-BAYER-2017-127102

PATIENT
  Age: 65 Year
  Sex: Male

DRUGS (1)
  1. NEXAVAR [Suspect]
     Active Substance: SORAFENIB
     Indication: HEPATOCELLULAR CARCINOMA
     Dosage: 200 MG, BID
     Route: 048
     Dates: start: 20170627

REACTIONS (26)
  - Dysgeusia [None]
  - Fatigue [None]
  - Abscess oral [None]
  - Tongue dry [None]
  - Pain in extremity [None]
  - Glossitis [None]
  - Decreased appetite [None]
  - Diarrhoea [None]
  - Glossodynia [None]
  - Gingivitis [None]
  - Sensitivity of teeth [Not Recovered/Not Resolved]
  - Dysphonia [None]
  - Blood pressure increased [Not Recovered/Not Resolved]
  - Nausea [None]
  - Pain of skin [None]
  - Alopecia [None]
  - Oral pain [Not Recovered/Not Resolved]
  - Dry skin [None]
  - Blood glucose increased [None]
  - Skin discomfort [None]
  - Radiation injury [None]
  - Abdominal discomfort [None]
  - Asthenia [None]
  - Headache [Not Recovered/Not Resolved]
  - Abdominal pain [None]
  - Weight decreased [None]

NARRATIVE: CASE EVENT DATE: 2017
